FAERS Safety Report 19989621 (Version 1)
Quarter: 2021Q4

REPORT INFORMATION
  Report Type: Spontaneous
  Country: US (occurrence: US)
  Receive Date: 20211025
  Receipt Date: 20211025
  Transmission Date: 20220303
  Serious: Yes (Other)
  Sender: FDA-Public Use
  Company Number: US-BIOVITRUM-2021US8736

PATIENT
  Sex: Female

DRUGS (1)
  1. KINERET [Suspect]
     Active Substance: ANAKINRA
     Indication: Rheumatoid arthritis
     Route: 058
     Dates: start: 202109

REACTIONS (4)
  - Still^s disease [Unknown]
  - Loss of personal independence in daily activities [Unknown]
  - Adverse drug reaction [Unknown]
  - Product quality issue [Unknown]
